FAERS Safety Report 9268739 (Version 2)
Quarter: 2014Q1

REPORT INFORMATION
  Report Type: Report from Study
  Country: US (occurrence: US)
  Receive Date: 20130502
  Receipt Date: 20140109
  Transmission Date: 20141002
  Serious: Yes (Other)
  Sender: FDA-Public Use
  Company Number: US-ALEXION-A201300424

PATIENT
  Age: 61 Year
  Sex: Male
  Weight: 67.57 kg

DRUGS (10)
  1. SOLIRIS [Suspect]
     Indication: HAEMOLYTIC URAEMIC SYNDROME
     Dosage: UNK
     Route: 042
     Dates: start: 20121214
  2. SOLIRIS [Suspect]
     Dosage: 1200 MG, Q2W
     Route: 042
     Dates: start: 20120212
  3. AMLODIPINE BESYLATE [Concomitant]
     Indication: PRODUCT USED FOR UNKNOWN INDICATION
     Dosage: 2.5 MG, QD
     Route: 048
  4. ASPIRIN [Concomitant]
     Indication: PRODUCT USED FOR UNKNOWN INDICATION
     Dosage: 325 MG, QD
     Route: 048
  5. CALCIUM ACETATE [Concomitant]
     Indication: PRODUCT USED FOR UNKNOWN INDICATION
     Dosage: 1 DF, QD
     Route: 048
  6. FOLIC ACID [Concomitant]
     Indication: PRODUCT USED FOR UNKNOWN INDICATION
     Dosage: 400 MG, QD
     Route: 048
  7. ISOSORBIDE DINITRATE [Concomitant]
     Indication: PRODUCT USED FOR UNKNOWN INDICATION
     Dosage: 10 MG, QD
     Route: 048
  8. MULTIVITAMIN [Concomitant]
     Indication: PRODUCT USED FOR UNKNOWN INDICATION
     Dosage: 5 ML, QD
     Route: 048
  9. SIMVASTATIN [Concomitant]
     Indication: PRODUCT USED FOR UNKNOWN INDICATION
     Dosage: 10 MG, QD
     Route: 048
  10. TAMSULOSIN HYDROCHLORIDE [Concomitant]
     Indication: PRODUCT USED FOR UNKNOWN INDICATION
     Dosage: 0.4 MG, QD
     Route: 048

REACTIONS (6)
  - Thrombotic microangiopathy [Unknown]
  - Haemoglobin decreased [Unknown]
  - Blood lactate dehydrogenase increased [Not Recovered/Not Resolved]
  - Dyspnoea exertional [Unknown]
  - Weight decreased [Recovered/Resolved]
  - Asthenia [Unknown]
